FAERS Safety Report 7205780-8 (Version None)
Quarter: 2010Q4

REPORT INFORMATION
  Report Type: 
  Country: None (occurrence: None)
  Receive Date: 20101231
  Receipt Date: 20101223
  Transmission Date: 20110411
  Serious: Yes (Death, Other)
  Sender: FDA-Public Use
  Company Number: CH-PFIZER INC-CH-WYE-H15077910

PATIENT
  Age: 79 Year
  Sex: Female

DRUGS (9)
  1. AMIODARONE HCL [Suspect]
     Dosage: 200 MG, 1X/DAY
     Route: 048
     Dates: end: 20100419
  2. TENORETIC 100 [Suspect]
     Dosage: 50 MG, 1X/DAY
     Route: 048
     Dates: end: 20100419
  3. LUDIOMIL [Suspect]
     Dosage: 75 MG, 1X/DAY
     Route: 048
     Dates: end: 20100419
  4. TRAMAL [Suspect]
     Dosage: UNK
     Route: 065
     Dates: end: 20100419
  5. XANAX [Concomitant]
  6. NEXIUM [Concomitant]
  7. FOLIC ACID [Concomitant]
  8. EUTHYROX [Concomitant]
  9. COZAAR [Concomitant]

REACTIONS (5)
  - BRADYCARDIA [None]
  - CARDIO-RESPIRATORY ARREST [None]
  - DRUG INTERACTION [None]
  - ELECTROCARDIOGRAM QT PROLONGED [None]
  - HYPOXIC-ISCHAEMIC ENCEPHALOPATHY [None]
